FAERS Safety Report 18377080 (Version 5)
Quarter: 2020Q4

REPORT INFORMATION
  Report Type: Spontaneous
  Country: JP (occurrence: JP)
  Receive Date: 20201013
  Receipt Date: 20201229
  Transmission Date: 20210114
  Serious: Yes (Hospitalization, Other)
  Sender: FDA-Public Use
  Company Number: JP-GLAXOSMITHKLINE-JP2020JPN199253

PATIENT
  Sex: Female
  Weight: 46 kg

DRUGS (11)
  1. FYCOMPA [Suspect]
     Active Substance: PERAMPANEL
     Indication: TEMPORAL LOBE EPILEPSY
     Dosage: 4 MG, 1D
     Route: 048
     Dates: end: 20200212
  2. LAMICTAL [Suspect]
     Active Substance: LAMOTRIGINE
     Dosage: 25 MG, QD
     Route: 048
     Dates: start: 20200304, end: 20200309
  3. TEGRETOL [Suspect]
     Active Substance: CARBAMAZEPINE
     Indication: TEMPORAL LOBE EPILEPSY
     Dosage: 200 MG, 1D
     Route: 048
     Dates: end: 20200212
  4. LAMICTAL [Suspect]
     Active Substance: LAMOTRIGINE
     Indication: TEMPORAL LOBE EPILEPSY
     Dosage: UNK
     Route: 048
  5. PHENOBAL [Suspect]
     Active Substance: PHENOBARBITAL
     Indication: TEMPORAL LOBE EPILEPSY
     Dosage: 30 MG, 1D
     Route: 048
     Dates: end: 20200714
  6. LAMICTAL [Suspect]
     Active Substance: LAMOTRIGINE
     Dosage: 25 MG, QOD
     Route: 048
     Dates: start: 20200401
  7. E KEPPRA [Suspect]
     Active Substance: LEVETIRACETAM
     Indication: TEMPORAL LOBE EPILEPSY
     Dosage: 1000 MG, 1D
     Route: 048
  8. LACOSAMIDE. [Suspect]
     Active Substance: LACOSAMIDE
     Indication: TEMPORAL LOBE EPILEPSY
     Dosage: UNK
  9. ALEVIATIN TABLETS (PHENYTOIN) [Suspect]
     Active Substance: PHENYTOIN
     Indication: TEMPORAL LOBE EPILEPSY
     Dosage: 50 MG, 1D
     Route: 048
     Dates: end: 20200217
  10. VALPROIC ACID. [Suspect]
     Active Substance: VALPROIC ACID
     Indication: TEMPORAL LOBE EPILEPSY
     Dosage: UNK
  11. LAMICTAL [Suspect]
     Active Substance: LAMOTRIGINE
     Dosage: 25 MG, BID
     Route: 048
     Dates: start: 20200213, end: 20200303

REACTIONS (4)
  - Tremor [Unknown]
  - Lymphoproliferative disorder [Unknown]
  - Lymphadenopathy mediastinal [Unknown]
  - Pulmonary hilum mass [Unknown]
